FAERS Safety Report 8176633 (Version 2)
Quarter: 2013Q1

REPORT INFORMATION
  Report Type: Report from Study
  Country: PL (occurrence: PL)
  Receive Date: 20111012
  Receipt Date: 20130215
  Transmission Date: 20140127
  Serious: Yes (Hospitalization, Other)
  Sender: FDA-Public Use
  Company Number: PL-JNJFOC-20110704327

PATIENT
  Age: 60 Year
  Sex: Female
  Weight: 76.1 kg

DRUGS (13)
  1. GOLIMUMAB [Suspect]
     Indication: RHEUMATOID ARTHRITIS
     Route: 042
     Dates: start: 20110518
  2. GOLIMUMAB [Suspect]
     Indication: RHEUMATOID ARTHRITIS
     Dosage: (WEEK 100)
     Route: 042
     Dates: start: 20121003
  3. GOLIMUMAB [Suspect]
     Indication: RHEUMATOID ARTHRITIS
     Route: 042
     Dates: start: 20101028
  4. PLACEBO [Suspect]
     Indication: RHEUMATOID ARTHRITIS
     Route: 042
     Dates: start: 20110518
  5. PLACEBO [Suspect]
     Indication: RHEUMATOID ARTHRITIS
     Route: 042
     Dates: start: 20101028
  6. METHYLPREDNISOLONE [Concomitant]
     Indication: RHEUMATOID ARTHRITIS
     Route: 048
     Dates: start: 201004
  7. PANTOPRAZOLE [Concomitant]
     Indication: GASTROINTESTINAL DISORDER THERAPY
     Route: 048
     Dates: end: 20110602
  8. ZALDIAR [Concomitant]
     Indication: RHEUMATOID ARTHRITIS
     Route: 048
     Dates: start: 20100917
  9. BISOPROLOL FUMARATE [Concomitant]
     Indication: TACHYCARDIA
     Route: 048
     Dates: start: 20100924
  10. VITRUM CALCIUM + VIT D3 [Concomitant]
     Indication: OSTEOPOROSIS
     Route: 048
     Dates: start: 20101010
  11. FOLIC ACID [Concomitant]
     Route: 048
  12. ZYRTEC [Concomitant]
     Route: 048
     Dates: start: 20101118
  13. POLPRAZOL [Concomitant]
     Indication: GASTRITIS PROPHYLAXIS
     Route: 048
     Dates: start: 20110602

REACTIONS (2)
  - Vertigo [Recovered/Resolved]
  - Vestibular neuronitis [Recovering/Resolving]
